FAERS Safety Report 5388951-5 (Version None)
Quarter: 2007Q3

REPORT INFORMATION
  Report Type: 
  Country: None (occurrence: None)
  Receive Date: 20070717
  Receipt Date: 20070710
  Transmission Date: 20080115
  Serious: Yes (Other)
  Sender: FDA-Public Use
  Company Number: PHBS2007BR10970

PATIENT
  Age: 36 Year
  Sex: Male
  Weight: 102 kg

DRUGS (1)
  1. FORASEQ [Suspect]
     Indication: ASTHMA
     Dosage: UNK, BID

REACTIONS (9)
  - ASTHMA [None]
  - DRUG INEFFECTIVE [None]
  - HEADACHE [None]
  - OEDEMA MOUTH [None]
  - OEDEMA PERIPHERAL [None]
  - PAIN IN EXTREMITY [None]
  - TOOTH DISORDER [None]
  - TOOTHACHE [None]
  - WEIGHT INCREASED [None]
